FAERS Safety Report 24636755 (Version 1)
Quarter: 2024Q4

REPORT INFORMATION
  Report Type: Spontaneous
  Country: US (occurrence: US)
  Receive Date: 20241119
  Receipt Date: 20241119
  Transmission Date: 20250115
  Serious: No
  Sender: IPSEN BIOPHARMACEUTICALS, INC.
  Company Number: US-IPSEN Group, Research and Development-2024-23028

PATIENT

DRUGS (1)
  1. ONIVYDE [Suspect]
     Active Substance: IRINOTECAN HYDROCHLORIDE
     Indication: Product used for unknown indication
     Dosage: X3 VIALS OF ONIVYDE 43 MG (DOSE OF 129 MG)
     Route: 065

REACTIONS (2)
  - Full blood count abnormal [Unknown]
  - Refusal of treatment by patient [Unknown]
